FAERS Safety Report 6397126-2 (Version None)
Quarter: 2009Q4

REPORT INFORMATION
  Report Type: 
  Country: None (occurrence: None)
  Receive Date: 20091012
  Receipt Date: 20091002
  Transmission Date: 20100525
  Serious: Yes (Hospitalization)
  Sender: FDA-Public Use
  Company Number: A0810027A

PATIENT
  Age: 38 Year
  Sex: Female

DRUGS (3)
  1. LAMOTRIGINE [Suspect]
     Indication: BIPOLAR DISORDER
     Dosage: 25MG PER DAY
     Route: 048
     Dates: end: 20090929
  2. QUETIAPINE [Concomitant]
  3. RISPERIDONE [Concomitant]

REACTIONS (7)
  - HEADACHE [None]
  - MENINGITIS [None]
  - MENINGITIS ASEPTIC [None]
  - MONONUCLEOSIS SYNDROME [None]
  - PLEOCYTOSIS [None]
  - PROTEIN TOTAL ABNORMAL [None]
  - PYREXIA [None]
